FAERS Safety Report 10915578 (Version 3)
Quarter: 2015Q2

REPORT INFORMATION
  Report Type: Spontaneous
  Country: US (occurrence: US)
  Receive Date: 20150316
  Receipt Date: 20150506
  Transmission Date: 20150821
  Serious: No
  Sender: FDA-Public Use
  Company Number: US-PFIZER INC-2015084943

PATIENT
  Age: 58 Year
  Sex: Male

DRUGS (7)
  1. ENALAPRIL [Concomitant]
     Active Substance: ENALAPRIL
     Dosage: UNK
  2. METOPROLOL [Concomitant]
     Active Substance: METOPROLOL
     Dosage: UNK
  3. SUTENT [Suspect]
     Active Substance: SUNITINIB MALATE
     Indication: SMALL INTESTINE CARCINOMA
     Dosage: 25 MG, ALTERNATE DAY
     Route: 048
     Dates: start: 20150109
  4. SUTENT [Suspect]
     Active Substance: SUNITINIB MALATE
     Indication: BENIGN NEOPLASM
     Dosage: 12.5 MG, ALTERNATE DAY
     Route: 048
     Dates: start: 20150110
  5. FISH OIL [Concomitant]
     Active Substance: FISH OIL
     Dosage: UNK
  6. OMEPRAZOLE. [Concomitant]
     Active Substance: OMEPRAZOLE
     Dosage: UNK
  7. OXYCODONE [Concomitant]
     Active Substance: OXYCODONE
     Dosage: UNK

REACTIONS (6)
  - Abdominal pain upper [Unknown]
  - Depressed mood [Unknown]
  - Asthenia [Unknown]
  - Product use issue [Unknown]
  - Pollakiuria [Unknown]
  - Flatulence [Unknown]

NARRATIVE: CASE EVENT DATE: 2015
